FAERS Safety Report 6676430-4 (Version None)
Quarter: 2010Q2

REPORT INFORMATION
  Report Type: 
  Country: None (occurrence: None)
  Receive Date: 20100412
  Receipt Date: 20100331
  Transmission Date: 20101027
  Serious: Yes (Other)
  Sender: FDA-Public Use
  Company Number: PHHY2010FR09275

PATIENT
  Sex: Female
  Weight: 72 kg

DRUGS (3)
  1. ACLASTA [Suspect]
     Indication: OSTEOPOROSIS
     Dosage: UNK
     Route: 042
     Dates: start: 20081108
  2. LOVENOX [Concomitant]
     Dosage: UNK
  3. LEVOTHYROX [Concomitant]
     Dosage: 50 MG, QD
     Dates: start: 19800101

REACTIONS (7)
  - ARTHRALGIA [None]
  - EAR PAIN [None]
  - HEADACHE [None]
  - INSOMNIA [None]
  - PROCEDURAL PAIN [None]
  - TINNITUS [None]
  - VERTIGO [None]
